FAERS Safety Report 25685790 (Version 1)
Quarter: 2025Q3

REPORT INFORMATION
  Report Type: Spontaneous
  Country: EU (occurrence: EU)
  Receive Date: 20250815
  Receipt Date: 20250815
  Transmission Date: 20251020
  Serious: Yes (Hospitalization)
  Sender: MERCK SHARP & DOHME LLC
  Company Number: None

PATIENT
  Age: 79 Year
  Sex: Male
  Weight: 57.3 kg

DRUGS (2)
  1. ERTAPENEM [Suspect]
     Active Substance: ERTAPENEM
     Indication: Prostatitis Escherichia coli
     Dosage: 1000MG, QD
     Route: 042
     Dates: start: 20240725, end: 20240726
  2. ERTAPENEM [Suspect]
     Active Substance: ERTAPENEM
     Indication: Prostatitis Escherichia coli
     Dosage: 500 MG, QD
     Route: 042
     Dates: start: 20250726, end: 20250728

REACTIONS (1)
  - Epilepsy [Recovered/Resolved]

NARRATIVE: CASE EVENT DATE: 20250726
